FAERS Safety Report 7117262-2 (Version None)
Quarter: 2010Q4

REPORT INFORMATION
  Report Type: 
  Country: None (occurrence: None)
  Receive Date: 20101122
  Receipt Date: 20101117
  Transmission Date: 20110411
  Serious: Yes (Hospitalization, Other)
  Sender: FDA-Public Use
  Company Number: US-ABBOTT-10P-163-0668020-00

PATIENT
  Sex: Female
  Weight: 58.112 kg

DRUGS (4)
  1. HUMIRA [Suspect]
     Indication: RHEUMATOID ARTHRITIS
     Route: 058
     Dates: start: 20070101
  2. DARVOCET [Concomitant]
     Indication: RHEUMATOID ARTHRITIS
  3. DARVOCET [Concomitant]
     Indication: PAIN
  4. PREVACID [Concomitant]
     Indication: REFLUX OESOPHAGITIS

REACTIONS (25)
  - ALOPECIA [None]
  - CATARACT [None]
  - CHEST PAIN [None]
  - CONSTIPATION [None]
  - DRUG INEFFECTIVE [None]
  - DRY MOUTH [None]
  - DYSPNOEA [None]
  - EXCORIATION [None]
  - EYE PENETRATION [None]
  - FACE INJURY [None]
  - FACIAL BONES FRACTURE [None]
  - FACIAL PAIN [None]
  - FALL [None]
  - GAIT DISTURBANCE [None]
  - HAEMORRHAGE [None]
  - HAEMORRHAGE INTRACRANIAL [None]
  - JOINT SWELLING [None]
  - NOCTURIA [None]
  - OEDEMA PERIPHERAL [None]
  - PAIN IN EXTREMITY [None]
  - PERIORBITAL HAEMATOMA [None]
  - PRURITUS [None]
  - RASH [None]
  - SKIN EXFOLIATION [None]
  - WHEEZING [None]
